FAERS Safety Report 11423311 (Version 1)
Quarter: 2015Q3

REPORT INFORMATION
  Report Type: Spontaneous
  Country: US (occurrence: None)
  Receive Date: 20150826
  Receipt Date: 20150826
  Transmission Date: 20151125
  Serious: Yes (Disabling)
  Sender: FDA-Public Use
  Company Number: None

PATIENT
  Age: 70 Year
  Sex: Male
  Weight: 78.47 kg

DRUGS (2)
  1. LOSARTAN 25MG TAB AUROBINDO GNC 14850 [Suspect]
     Active Substance: LOSARTAN
     Indication: BLOOD PRESSURE MEASUREMENT
     Route: 048
     Dates: start: 20150526, end: 20150708
  2. ENTERIC COATED ASPIRIN [Concomitant]
     Active Substance: ASPIRIN

REACTIONS (7)
  - Nocturia [None]
  - Abnormal behaviour [None]
  - Insomnia [None]
  - Impaired work ability [None]
  - Nightmare [None]
  - Nail picking [None]
  - Psychomotor hyperactivity [None]

NARRATIVE: CASE EVENT DATE: 20150530
